FAERS Safety Report 19933529 (Version 2)
Quarter: 2021Q4

REPORT INFORMATION
  Report Type: Spontaneous
  Country: DE (occurrence: DE)
  Receive Date: 20211008
  Receipt Date: 20211015
  Transmission Date: 20220303
  Serious: Yes (Life-Threatening)
  Sender: FDA-Public Use
  Company Number: DE-CELLTRION HEALTHCARE HUNGARY KFT-2021DE007983

PATIENT

DRUGS (24)
  1. METHOTREXATE [Suspect]
     Active Substance: METHOTREXATE
     Indication: Diffuse large B-cell lymphoma
     Dosage: UNK (4 G/M2 (DAY 1, R-MTX))
  2. METHOTREXATE [Suspect]
     Active Substance: METHOTREXATE
     Indication: Central nervous system lymphoma
     Dosage: UNK
  3. CYTARABINE [Suspect]
     Active Substance: CYTARABINE
     Indication: Diffuse large B-cell lymphoma
     Dosage: UNK (4 G/M2 (DAY 1-2 R-ARAC/TT X 2 CYCLES))
  4. CYTARABINE [Suspect]
     Active Substance: CYTARABINE
     Indication: Central nervous system lymphoma
     Dosage: UNK
  5. DOXORUBICIN [Suspect]
     Active Substance: DOXORUBICIN
     Indication: Diffuse large B-cell lymphoma
     Dosage: 50 MILLIGRAM/SQ. METER (50 MG/M2 (DAY 1, R-CHOP))
     Route: 042
  6. DOXORUBICIN [Suspect]
     Active Substance: DOXORUBICIN
     Indication: Central nervous system lymphoma
     Dosage: UNK
  7. ACYCLOVIR [Suspect]
     Active Substance: ACYCLOVIR
     Indication: Prophylaxis
     Dosage: 800 MILLIGRAM (800 MG 2?/DAY)
  8. RITUXIMAB [Suspect]
     Active Substance: RITUXIMAB
     Indication: Central nervous system lymphoma
     Dosage: 1400 MILLIGRAM (1400 MG ABS (DAY 0, R-MTX X 4 CYCLES))
     Route: 058
  9. RITUXIMAB [Suspect]
     Active Substance: RITUXIMAB
     Indication: Diffuse large B-cell lymphoma
     Dosage: 1400 MILLIGRAM (1400 MG ABS (DAY 1, R-CHOP X 4 CYCLES))
     Route: 058
  10. RITUXIMAB [Suspect]
     Active Substance: RITUXIMAB
     Dosage: 1400 MILLIGRAM (1400 MG ABS (DAY 1, R-ARAC/TT X 4 CYCLES))
     Route: 058
  11. RITUXIMAB [Suspect]
     Active Substance: RITUXIMAB
     Dosage: 1400 MILLIGRAM (1400 MG ABS (DAY 7, R-HD-BCNU/TT X 4 CYCLES))
     Route: 058
  12. RITUXIMAB [Suspect]
     Active Substance: RITUXIMAB
     Dosage: 375 MILLIGRAM/SQ. METER (375 MILLIGRAM/SQ. METER (375 MG/M2 (DAY 0, R-MTX)))
     Route: 042
  13. RITUXIMAB [Suspect]
     Active Substance: RITUXIMAB
     Dosage: 375 MILLIGRAM/SQ. METER (375 MG/M2 (DAY 1, R-CHOP))
     Route: 042
  14. BICNU [Suspect]
     Active Substance: CARMUSTINE
     Indication: Diffuse large B-cell lymphoma
     Dosage: 400 MILLIGRAM/SQ. METER (400 MG/M2 (DAY6, R-HD-BCNU/TT))
  15. BICNU [Suspect]
     Active Substance: CARMUSTINE
     Indication: Central nervous system lymphoma
     Dosage: UNK
  16. THIOTEPA [Suspect]
     Active Substance: THIOTEPA
     Indication: Central nervous system lymphoma
     Dosage: 40 MILLIGRAM/SQ. METER
  17. THIOTEPA [Suspect]
     Active Substance: THIOTEPA
     Indication: Diffuse large B-cell lymphoma
     Dosage: UNK (2 ? 5 MG/M2 (DAY-5/ -4, R-HD-BCNU/TT))
  18. CYCLOPHOSPHAMIDE [Suspect]
     Active Substance: CYCLOPHOSPHAMIDE
     Indication: Diffuse large B-cell lymphoma
     Dosage: 750 MILLIGRAM/SQ. METER (750 MG/M2 (DAY 1, R-CHOP))
     Route: 042
  19. CYCLOPHOSPHAMIDE [Suspect]
     Active Substance: CYCLOPHOSPHAMIDE
     Indication: Central nervous system lymphoma
     Dosage: UNK
  20. VINCRISTINE [Suspect]
     Active Substance: VINCRISTINE
     Indication: Diffuse large B-cell lymphoma
     Dosage: UNK (2 / 1 MG ABS (DAY 1, R-CHOP))
     Route: 042
  21. VINCRISTINE [Suspect]
     Active Substance: VINCRISTINE
     Indication: Central nervous system lymphoma
     Dosage: UNK
  22. PREDNISONE [Suspect]
     Active Substance: PREDNISONE
     Indication: Diffuse large B-cell lymphoma
     Dosage: 100 MILLIGRAM (100 MG ABS (DAY 1-5, R-CHOP))
     Route: 042
  23. PREDNISONE [Suspect]
     Active Substance: PREDNISONE
     Indication: Central nervous system lymphoma
     Dosage: UNK
  24. LEUCOVORIN [Suspect]
     Active Substance: LEUCOVORIN
     Indication: Product used for unknown indication
     Dosage: UNK

REACTIONS (1)
  - Haematotoxicity [Unknown]
